FAERS Safety Report 5839945-4 (Version None)
Quarter: 2008Q3

REPORT INFORMATION
  Report Type: 
  Country: None (occurrence: None)
  Receive Date: 20080807
  Receipt Date: 20080807
  Transmission Date: 20090109
  Serious: Yes (Other)
  Sender: FDA-Public Use
  Company Number: None

PATIENT
  Age: 66 Year
  Sex: Female
  Weight: 55.7924 kg

DRUGS (1)
  1. LONOX [Suspect]
     Indication: DIARRHOEA
     Dosage: 2 TO START + AFTER EACH LOOSE STOOL ORAL
     Route: 048
     Dates: start: 20080708

REACTIONS (4)
  - ABDOMINAL PAIN LOWER [None]
  - DIZZINESS [None]
  - NAUSEA [None]
  - SOMNOLENCE [None]
